FAERS Safety Report 20477829 (Version 2)
Quarter: 2022Q1

REPORT INFORMATION
  Report Type: Spontaneous
  Country: CN (occurrence: CN)
  Receive Date: 20220216
  Receipt Date: 20220224
  Transmission Date: 20220423
  Serious: Yes (Other)
  Sender: FDA-Public Use
  Company Number: CN-Accord-253814

PATIENT
  Age: 55 Year
  Sex: Male

DRUGS (2)
  1. CAPECITABINE [Suspect]
     Active Substance: CAPECITABINE
     Indication: Cholangiocarcinoma
     Dosage: 0.3G T.I.D
  2. APATINIB [Concomitant]
     Active Substance: APATINIB
     Indication: Cholangiocarcinoma
     Dosage: 0.5G Q.D

REACTIONS (1)
  - Toxic encephalopathy [Recovered/Resolved]
